FAERS Safety Report 18487833 (Version 8)
Quarter: 2022Q2

REPORT INFORMATION
  Report Type: Report from Study
  Country: US (occurrence: US)
  Receive Date: 20201110
  Receipt Date: 20220428
  Transmission Date: 20220721
  Serious: Yes (Hospitalization, Other)
  Sender: FDA-Public Use
  Company Number: NVSC2020US297609

PATIENT
  Sex: Male

DRUGS (1)
  1. ENTRESTO [Suspect]
     Active Substance: SACUBITRIL\VALSARTAN
     Indication: Cardiac failure chronic
     Dosage: 1 DOSAGE FORM, BID, 24/26 MG
     Route: 065
     Dates: start: 2018

REACTIONS (13)
  - Dysuria [Unknown]
  - Renal disorder [Unknown]
  - Renal impairment [Unknown]
  - Blood urea increased [Unknown]
  - Blood creatinine increased [Unknown]
  - Renal failure [Unknown]
  - Chronic kidney disease [Unknown]
  - Bone cancer [Unknown]
  - Plasma cell myeloma [Unknown]
  - Acute kidney injury [Unknown]
  - Oedema [Unknown]
  - Weight decreased [Unknown]
  - Hypotension [Unknown]
